FAERS Safety Report 5523560-6 (Version None)
Quarter: 2007Q4

REPORT INFORMATION
  Report Type: 
  Country: None (occurrence: None)
  Receive Date: 20071116
  Receipt Date: 20071112
  Transmission Date: 20080405
  Serious: Yes (Hospitalization)
  Sender: FDA-Public Use
  Company Number: GRT 2007-12054

PATIENT
  Age: 60 Year
  Sex: Male
  Weight: 92.5 kg

DRUGS (13)
  1. LIDOCAINE [Suspect]
     Indication: NEURALGIA
     Dosage: 3 PATCHES A DAY
     Dates: start: 20070302, end: 20070524
  2. NOVONORM [Concomitant]
  3. GLUCOPHAGE [Concomitant]
  4. ACTOS [Concomitant]
  5. FUROSEMIDE [Concomitant]
  6. CARVEDILOL [Concomitant]
  7. ALLOPURINOL [Concomitant]
  8. IRBESARTAN [Concomitant]
  9. PIROXICAM [Concomitant]
  10. DICLOFENAC SODIUM [Concomitant]
  11. TRAMADOL HCL [Concomitant]
  12. PARACETAMOL [Concomitant]
  13. MOVICOL [Concomitant]

REACTIONS (5)
  - CONSTIPATION [None]
  - METASTASES TO BONE [None]
  - METASTASES TO LIVER [None]
  - RECTAL CANCER [None]
  - URINARY RETENTION [None]
